FAERS Safety Report 5149238-9 (Version None)
Quarter: 2006Q4

REPORT INFORMATION
  Report Type: 
  Country: None (occurrence: None)
  Receive Date: 20061113
  Receipt Date: 20061102
  Transmission Date: 20070319
  Serious: Yes (Congenital Anomaly)
  Sender: FDA-Public Use
  Company Number: US-GLAXOSMITHKLINE-A0626253A

PATIENT
  Sex: Female
  Weight: 3.3 kg

DRUGS (5)
  1. ALBUTEROL [Suspect]
     Indication: ASTHMA
  2. SALMETEROL [Suspect]
     Indication: ASTHMA
  3. SINGULAIR [Suspect]
     Indication: ASTHMA
  4. CROMOLYN SODIUM [Concomitant]
  5. VITAMINS [Concomitant]

REACTIONS (2)
  - CONGENITAL HAND MALFORMATION [None]
  - DRUG EXPOSURE DURING PREGNANCY [None]
